FAERS Safety Report 24994236 (Version 1)
Quarter: 2025Q1

REPORT INFORMATION
  Report Type: Spontaneous
  Country: IT (occurrence: IT)
  Receive Date: 20250221
  Receipt Date: 20250221
  Transmission Date: 20250409
  Serious: Yes (Other)
  Sender: HIKMA
  Company Number: None

PATIENT
  Age: 70 Year
  Sex: Male
  Weight: 57 kg

DRUGS (1)
  1. CISPLATIN [Suspect]
     Active Substance: CISPLATIN
     Indication: Glioblastoma
     Route: 042
     Dates: start: 20241009, end: 20241009

REACTIONS (3)
  - Diplopia [Recovering/Resolving]
  - Thrombocytopenia [Not Recovered/Not Resolved]
  - Off label use [Recovering/Resolving]

NARRATIVE: CASE EVENT DATE: 20241009
